FAERS Safety Report 9682591 (Version 1)
Quarter: 2013Q4

REPORT INFORMATION
  Report Type: Spontaneous
  Country: DE (occurrence: DE)
  Receive Date: 20131016
  Receipt Date: 20131016
  Transmission Date: 20140711
  Serious: Yes (Hospitalization, Congenital Anomaly, Other)
  Sender: FDA-Public Use
  Company Number: DE-DRREDDYS-GER/GER/13/0034942

PATIENT
  Sex: Female
  Weight: 3.16 kg

DRUGS (2)
  1. LAMOTRIGINE [Suspect]
     Indication: PRODUCT USED FOR UNKNOWN INDICATION
     Dosage: 50-0-25
     Route: 064
  2. FOLIO [Concomitant]
     Indication: PRODUCT USED FOR UNKNOWN INDICATION
     Route: 064

REACTIONS (4)
  - Atrial septal defect [Unknown]
  - Duodenal stenosis [Recovered/Resolved with Sequelae]
  - Peritoneal adhesions [Recovered/Resolved with Sequelae]
  - Foetal exposure during pregnancy [Unknown]
